FAERS Safety Report 4932230-4 (Version None)
Quarter: 2006Q1

REPORT INFORMATION
  Report Type: 
  Country: None (occurrence: None)
  Receive Date: 20060228
  Receipt Date: 20060214
  Transmission Date: 20060701
  Serious: Yes (Hospitalization)
  Sender: FDA-Public Use
  Company Number: US016871

PATIENT
  Age: 54 Year
  Sex: Male

DRUGS (15)
  1. MODAFINIL [Suspect]
     Indication: HYPERSOMNIA
     Dates: start: 20051027
  2. MODAFINIL [Suspect]
     Indication: SLEEP APNOEA SYNDROME
     Dates: start: 20051027
  3. RITONAVIR [Suspect]
     Indication: HIV INFECTION
     Dosage: 100 MG BID ORAL
     Route: 048
     Dates: start: 20050316
  4. STILLNOX [Suspect]
     Indication: INSOMNIA
     Dosage: 10 MG QD ORAL
     Route: 048
     Dates: start: 20051202
  5. TMC114 [Concomitant]
  6. ABACAVIR [Concomitant]
  7. TENOFOVIR [Concomitant]
  8. ENPUVIRTIDE [Concomitant]
  9. PLAVIX [Concomitant]
  10. DETENSIEL [Concomitant]
  11. KARDEGIC [Concomitant]
  12. ADANCOR [Concomitant]
  13. NITROGLYCERIN [Concomitant]
  14. CRESTOR [Concomitant]
  15. OMEPRAZOLE [Concomitant]

REACTIONS (2)
  - ABNORMAL BEHAVIOUR [None]
  - CHEST PAIN [None]
